FAERS Safety Report 7606073-7 (Version None)
Quarter: 2011Q3

REPORT INFORMATION
  Report Type: 
  Country: None (occurrence: None)
  Receive Date: 20110713
  Receipt Date: 20110705
  Transmission Date: 20111222
  Serious: Yes (Death, Hospitalization)
  Sender: FDA-Public Use
  Company Number: JP-BAYER-2011-018925

PATIENT
  Age: 71 Year
  Sex: Male
  Weight: 65 kg

DRUGS (4)
  1. NEXAVAR [Suspect]
     Indication: HEPATIC NEOPLASM MALIGNANT
     Dosage: 400 MG, QD
     Route: 048
     Dates: start: 20110203, end: 20110220
  2. GLAKAY [Concomitant]
     Indication: OSTEOPOROSIS
     Dosage: DAILY DOSE 45 MG
     Route: 048
     Dates: start: 20050414, end: 20110310
  3. AMARYL [Concomitant]
     Indication: DIABETES MELLITUS
     Dosage: DAILY DOSE 1 MG
     Route: 048
     Dates: end: 20110310
  4. PERINDOPRIL ERBUMINE [Concomitant]
     Indication: HYPERTENSION
     Dosage: DAILY DOSE 2 MG
     Route: 048
     Dates: start: 20101017, end: 20110310

REACTIONS (6)
  - DECREASED APPETITE [None]
  - MALAISE [None]
  - OEDEMA PERIPHERAL [None]
  - HEPATIC FUNCTION ABNORMAL [None]
  - HEPATIC NEOPLASM MALIGNANT [None]
  - JAUNDICE [None]
